FAERS Safety Report 16353758 (Version 4)
Quarter: 2019Q4

REPORT INFORMATION
  Report Type: Report from Study
  Country: None (occurrence: US)
  Receive Date: 20190524
  Receipt Date: 20191225
  Transmission Date: 20200122
  Serious: Yes (Other)
  Sender: FDA-Public Use
  Company Number: US-ABBVIE-19K-163-2794484-00

PATIENT
  Sex: Male

DRUGS (2)
  1. HUMIRA [Suspect]
     Active Substance: ADALIMUMAB
     Indication: RHEUMATOID ARTHRITIS
     Route: 058
     Dates: start: 2017, end: 2019
  2. HUMIRA [Suspect]
     Active Substance: ADALIMUMAB
     Route: 058
     Dates: start: 20190913

REACTIONS (4)
  - Rheumatoid arthritis [Recovering/Resolving]
  - Pain [Recovering/Resolving]
  - Lung neoplasm malignant [Unknown]
  - Drug ineffective [Unknown]
